FAERS Safety Report 9384506 (Version 1)
Quarter: 2013Q3

REPORT INFORMATION
  Report Type: Spontaneous
  Country: CA (occurrence: CA)
  Receive Date: 20130705
  Receipt Date: 20130705
  Transmission Date: 20140515
  Serious: Yes (Other)
  Sender: FDA-Public Use
  Company Number: CA-JNJFOC-20120508781

PATIENT
  Age: 32 Year
  Sex: Male
  Weight: 75.5 kg

DRUGS (5)
  1. REMICADE [Suspect]
     Indication: CROHN^S DISEASE
     Route: 042
     Dates: start: 20130423
  2. REMICADE [Suspect]
     Indication: CROHN^S DISEASE
     Dosage: 2ND INFUSION, FREQUENCY EVERY 0, 2 AND 6 WEEKS
     Route: 042
     Dates: start: 20120507, end: 20120507
  3. REMICADE [Suspect]
     Indication: CROHN^S DISEASE
     Dosage: RECEIVED 3 DOSES IN 2003
     Route: 042
     Dates: start: 2003
  4. BENADRYL [Concomitant]
     Indication: PREMEDICATION
     Route: 042
  5. TYLENOL [Concomitant]
     Indication: PREMEDICATION
     Route: 048

REACTIONS (5)
  - Dyspnoea [Recovered/Resolved]
  - Chest pain [Recovered/Resolved]
  - Infusion related reaction [Recovered/Resolved]
  - Tachycardia [Recovered/Resolved]
  - Flushing [Recovered/Resolved]
